FAERS Safety Report 4798686-5 (Version None)
Quarter: 2005Q4

REPORT INFORMATION
  Report Type: 
  Country: None (occurrence: None)
  Receive Date: 20051014
  Receipt Date: 20051003
  Transmission Date: 20060501
  Serious: Yes (Death)
  Sender: FDA-Public Use
  Company Number: IT-JNJFOC-20051000415

PATIENT
  Sex: Female

DRUGS (5)
  1. RISPERDAL [Suspect]
     Route: 048
  2. RISPERDAL [Suspect]
     Indication: PSYCHOMOTOR HYPERACTIVITY
     Dosage: DOSE: 0.25-0.5 MG
     Route: 048
  3. REMINYL [Concomitant]
     Route: 048
     Dates: start: 20021108, end: 20050824
  4. REMINYL [Concomitant]
     Route: 048
     Dates: start: 20021108, end: 20050824
  5. REMINYL [Concomitant]
     Route: 048
     Dates: start: 20021108, end: 20050824

REACTIONS (1)
  - MYOCARDIAL INFARCTION [None]
